FAERS Safety Report 6440933-8 (Version None)
Quarter: 2009Q4

REPORT INFORMATION
  Report Type: 
  Country: None (occurrence: None)
  Receive Date: 20091116
  Receipt Date: 20091110
  Transmission Date: 20100525
  Serious: Yes (Hospitalization)
  Sender: FDA-Public Use
  Company Number: DE-BRISTOL-MYERS SQUIBB COMPANY-14854335

PATIENT
  Age: 27 Year
  Sex: Male

DRUGS (3)
  1. ABILIFY [Suspect]
     Indication: SCHIZOPHRENIA, PARANOID TYPE
     Route: 048
     Dates: start: 20090210
  2. ZYPREXA [Suspect]
     Indication: SCHIZOPHRENIA, PARANOID TYPE
     Dosage: 25MG FROM 5FEB09-18MAR09+24MAR09-ONG 20MG FROM 19-23MAR09
     Route: 048
     Dates: start: 20090205
  3. TRUXAL [Suspect]
     Dosage: 1 DOSAGE FORM = 60-30 MG.
     Route: 048
     Dates: start: 20090209, end: 20090210

REACTIONS (1)
  - CIRCULATORY COLLAPSE [None]
